FAERS Safety Report 13458669 (Version 3)
Quarter: 2017Q3

REPORT INFORMATION
  Report Type: Spontaneous
  Country: JP (occurrence: JP)
  Receive Date: 20170419
  Receipt Date: 20170828
  Transmission Date: 20171127
  Serious: Yes (Death, Other)
  Sender: FDA-Public Use
  Company Number: JP-TAKEDA-2017MPI003477

PATIENT
  Age: 72 Year
  Sex: Female

DRUGS (3)
  1. VELCADE [Suspect]
     Active Substance: BORTEZOMIB
     Dosage: 1.3 MG, 1/WEEK
     Route: 058
     Dates: start: 20170207, end: 201703
  2. DEXAMETHASONE. [Concomitant]
     Active Substance: DEXAMETHASONE
     Indication: PLASMA CELL MYELOMA
     Dosage: 19 MG, 1/WEEK
     Route: 048
     Dates: start: 20161226, end: 201702
  3. VELCADE [Suspect]
     Active Substance: BORTEZOMIB
     Indication: PLASMA CELL MYELOMA
     Dosage: 1.3 MG, 1/WEEK
     Route: 058
     Dates: start: 20161226, end: 2017

REACTIONS (2)
  - Plasma cell myeloma [Unknown]
  - Infection [Fatal]

NARRATIVE: CASE EVENT DATE: 201703
